FAERS Safety Report 7485456-2 (Version None)
Quarter: 2011Q2

REPORT INFORMATION
  Report Type: 
  Country: None (occurrence: None)
  Receive Date: 20110517
  Receipt Date: 20110429
  Transmission Date: 20111010
  Serious: No
  Sender: FDA-Public Use
  Company Number: US-B.I. PHARMACEUTICALS,INC./RIDGEFIELD-2011-BP-04281BP

PATIENT
  Sex: Female

DRUGS (7)
  1. METOPROLOL SUCCINATE [Concomitant]
     Indication: ATRIAL FIBRILLATION
     Dosage: 50 MG
  2. ULORIC [Concomitant]
     Indication: GOUT
     Dosage: 40 MG
  3. PRADAXA [Suspect]
     Indication: ATRIAL FIBRILLATION
     Dosage: 300 MG
     Route: 048
     Dates: start: 20110207
  4. ASOPT [Concomitant]
     Indication: GLAUCOMA
  5. TRIAMTERENE AND HYDROCHLOROTHIAZIDE [Concomitant]
     Indication: ATRIAL FIBRILLATION
  6. VITAMIN D [Concomitant]
     Indication: OSTEOPOROSIS
     Dosage: 5000 U
  7. LUMIGAN [Concomitant]
     Indication: GLAUCOMA

REACTIONS (2)
  - COUGH [None]
  - NASAL CONGESTION [None]
